FAERS Safety Report 8515408-2 (Version None)
Quarter: 2012Q3

REPORT INFORMATION
  Report Type: 
  Country: None (occurrence: None)
  Receive Date: 20120717
  Receipt Date: 20120710
  Transmission Date: 20120928
  Serious: Yes (Other)
  Sender: FDA-Public Use
  Company Number: IL-ROXANE LABORATORIES, INC.-2012-RO-01533RO

PATIENT
  Age: 46 Year
  Sex: Female

DRUGS (3)
  1. BUPIVACAINE HCL [Suspect]
     Indication: LOCAL ANAESTHESIA
  2. LITHIUM CARBONATE [Suspect]
     Indication: BIPOLAR DISORDER
     Dosage: 750 MG
     Route: 048
  3. LIDOCAINE [Suspect]
     Indication: LOCAL ANAESTHESIA

REACTIONS (1)
  - ANAESTHETIC COMPLICATION [None]
